FAERS Safety Report 9265862 (Version 2)
Quarter: 2013Q2

REPORT INFORMATION
  Report Type: Spontaneous
  Country: GB (occurrence: GB)
  Receive Date: 20130501
  Receipt Date: 20130510
  Transmission Date: 20140414
  Serious: Yes (Other)
  Sender: FDA-Public Use
  Company Number: GB-PFIZER INC-2013132375

PATIENT
  Sex: Female

DRUGS (2)
  1. CHAMPIX [Suspect]
  2. IBUPROFEN [Suspect]

REACTIONS (1)
  - Drug hypersensitivity [Unknown]
